FAERS Safety Report 14938034 (Version 3)
Quarter: 2018Q3

REPORT INFORMATION
  Report Type: Spontaneous
  Country: JP (occurrence: JP)
  Receive Date: 20180525
  Receipt Date: 20180731
  Transmission Date: 20181010
  Serious: Yes (Hospitalization)
  Sender: FDA-Public Use
  Company Number: JP-CELGENEUS-JPN-20180507230

PATIENT
  Age: 65 Year
  Sex: Male
  Weight: 42 kg

DRUGS (15)
  1. OTEZLA [Suspect]
     Active Substance: APREMILAST
     Dosage: 30 MILLIGRAM
     Route: 048
     Dates: start: 20180612, end: 20180615
  2. TIGASON [Concomitant]
     Active Substance: ETRETINATE
     Dosage: 10 MILLIGRAM
     Route: 065
     Dates: start: 20180323, end: 20180421
  3. OTEZLA [Suspect]
     Active Substance: APREMILAST
     Indication: PSORIASIS
     Dosage: 60 MILLIGRAM
     Route: 048
     Dates: start: 20180414, end: 20180521
  4. TRAMAL [Concomitant]
     Active Substance: TRAMADOL
     Indication: PERIPHERAL ARTERIAL OCCLUSIVE DISEASE
     Dosage: 100 MILLIGRAM
     Route: 048
     Dates: start: 20180402, end: 20180521
  5. CILOSTAZOL. [Concomitant]
     Active Substance: CILOSTAZOL
     Indication: PERIPHERAL ARTERIAL OCCLUSIVE DISEASE
     Dosage: 200 MILLIGRAM
     Route: 048
     Dates: start: 20180417, end: 20180521
  6. OTEZLA [Suspect]
     Active Substance: APREMILAST
     Dosage: 60 MILLIGRAM
     Route: 048
     Dates: start: 20180616
  7. LYRICA [Concomitant]
     Active Substance: PREGABALIN
     Indication: PERIPHERAL ARTERIAL OCCLUSIVE DISEASE
     Dosage: 100 MILLIGRAM
     Route: 048
     Dates: start: 20180413, end: 20180521
  8. TAKEPRON [Concomitant]
     Active Substance: LANSOPRAZOLE
     Indication: GASTRIC ULCER
     Dosage: 30 MILLIGRAM
     Route: 048
     Dates: start: 20180329, end: 20180521
  9. MERISLON [Concomitant]
     Active Substance: BETAHISTINE MESILATE
     Indication: VERTIGO POSITIONAL
     Dosage: 18 MILLIGRAM
     Route: 048
     Dates: start: 20180505, end: 20180521
  10. BIO?THREE [Concomitant]
     Active Substance: HERBALS
     Indication: PRODUCT USED FOR UNKNOWN INDICATION
     Route: 048
     Dates: start: 20180517, end: 20180521
  11. TIGASON [Concomitant]
     Active Substance: ETRETINATE
     Indication: PSORIASIS
     Dosage: 40 MILLIGRAM
     Route: 065
     Dates: end: 20180322
  12. FERROUS SULFATE. [Concomitant]
     Active Substance: FERROUS SULFATE
     Indication: IRON DEFICIENCY ANAEMIA
     Dosage: 210 MILLIGRAM
     Route: 048
     Dates: start: 20180327, end: 20180521
  13. ALESION [Concomitant]
     Active Substance: EPINASTINE HYDROCHLORIDE
     Indication: PSORIASIS
     Dosage: 20 MILLIGRAM
     Route: 048
     Dates: start: 20180403, end: 20180521
  14. CALONAL [Concomitant]
     Active Substance: ACETAMINOPHEN
     Indication: PERIPHERAL ARTERIAL OCCLUSIVE DISEASE
     Dosage: 1500 MILLIGRAM
     Route: 048
     Dates: start: 20180323, end: 20180521
  15. PRIMPERAN [Concomitant]
     Active Substance: METOCLOPRAMIDE HYDROCHLORIDE
     Indication: VERTIGO POSITIONAL
     Dosage: 15 MILLIGRAM
     Route: 048
     Dates: start: 20180424, end: 20180521

REACTIONS (3)
  - Diarrhoea [Recovering/Resolving]
  - Hypokalaemia [Recovering/Resolving]
  - Vertigo positional [Recovering/Resolving]

NARRATIVE: CASE EVENT DATE: 20180501
